FAERS Safety Report 15762420 (Version 1)
Quarter: 2018Q4

REPORT INFORMATION
  Report Type: Report from Study
  Country: GB (occurrence: GB)
  Receive Date: 20181226
  Receipt Date: 20181226
  Transmission Date: 20190205
  Serious: Yes (Hospitalization)
  Sender: FDA-Public Use
  Company Number: GB-JNJFOC-20180817859

PATIENT
  Sex: Female

DRUGS (5)
  1. MIRTAZAPINE. [Concomitant]
     Active Substance: MIRTAZAPINE
     Route: 065
  2. CEPHRADINE [Concomitant]
     Active Substance: CEPHRADINE
     Route: 065
  3. TRAMADOL. [Concomitant]
     Active Substance: TRAMADOL
     Route: 065
  4. NOVOMIX [Concomitant]
     Active Substance: INSULIN ASPART
     Indication: DIABETES MELLITUS
     Route: 065
  5. STELARA [Suspect]
     Active Substance: USTEKINUMAB
     Indication: PSORIASIS
     Dosage: FREQUENCY: ON WEEK 4 AS DIRECTED
     Route: 058
     Dates: start: 2018

REACTIONS (10)
  - Furuncle [Unknown]
  - Ill-defined disorder [Unknown]
  - Vomiting [Unknown]
  - Gingival bleeding [Unknown]
  - Oropharyngeal pain [Unknown]
  - Ulcer [Unknown]
  - Hospitalisation [Unknown]
  - Diarrhoea [Unknown]
  - Gastritis [Unknown]
  - Abscess [Unknown]

NARRATIVE: CASE EVENT DATE: 2018
